FAERS Safety Report 6821231-7 (Version None)
Quarter: 2010Q2

REPORT INFORMATION
  Report Type: 
  Country: None (occurrence: None)
  Receive Date: 20100630
  Receipt Date: 20100616
  Transmission Date: 20101027
  Serious: Yes (Hospitalization, Other)
  Sender: FDA-Public Use
  Company Number: 009903

PATIENT
  Sex: Female
  Weight: 73 kg

DRUGS (5)
  1. LACOSAMIDE [Suspect]
     Indication: EPILEPSY
     Dosage: (100 MG BID ORAL), (200 MG, 50MG MORNINGS AND MIDDAY, 100MG EVENINGS)
     Route: 048
     Dates: start: 20090724, end: 20100301
  2. LACOSAMIDE [Suspect]
     Indication: EPILEPSY
     Dosage: (100 MG BID ORAL), (200 MG, 50MG MORNINGS AND MIDDAY, 100MG EVENINGS)
     Route: 048
     Dates: start: 20100301
  3. LEVETIRACETAM [Suspect]
     Indication: EPILEPSY
     Dosage: (1500 MG BID ORAL), (2500 MG, 500MG EVENINGS, 1000MG MORNINGS AND EVENINGS), (1000 MG TID)
     Route: 048
     Dates: end: 20100301
  4. LEVETIRACETAM [Suspect]
     Indication: EPILEPSY
     Dosage: (1500 MG BID ORAL), (2500 MG, 500MG EVENINGS, 1000MG MORNINGS AND EVENINGS), (1000 MG TID)
     Route: 048
     Dates: start: 20090724
  5. LEVETIRACETAM [Suspect]
     Indication: EPILEPSY
     Dosage: (1500 MG BID ORAL), (2500 MG, 500MG EVENINGS, 1000MG MORNINGS AND EVENINGS), (1000 MG TID)
     Route: 048
     Dates: start: 20100301

REACTIONS (6)
  - AMNESIA [None]
  - CONCUSSION [None]
  - CONVULSION [None]
  - DRUG EXPOSURE DURING PREGNANCY [None]
  - ROAD TRAFFIC ACCIDENT [None]
  - WHIPLASH INJURY [None]
